FAERS Safety Report 6613177-4 (Version None)
Quarter: 2010Q1

REPORT INFORMATION
  Report Type: 
  Country: None (occurrence: None)
  Receive Date: 20100225
  Receipt Date: 20100222
  Transmission Date: 20100710
  Serious: Yes (Death)
  Sender: FDA-Public Use
  Company Number: 2010AC000134

PATIENT

DRUGS (1)
  1. DIGOXIN [Suspect]
     Dosage: PO
     Route: 048
     Dates: start: 20070517, end: 20080101

REACTIONS (3)
  - ECONOMIC PROBLEM [None]
  - MULTIPLE INJURIES [None]
  - UNEVALUABLE EVENT [None]
